FAERS Safety Report 12650757 (Version 1)
Quarter: 2016Q3

REPORT INFORMATION
  Report Type: Spontaneous
  Country: US (occurrence: US)
  Receive Date: 20160815
  Receipt Date: 20160815
  Transmission Date: 20161109
  Serious: No
  Sender: FDA-Public Use
  Company Number: US-JAZZ-2016-US-004821

PATIENT
  Age: 58 Year
  Sex: Male

DRUGS (20)
  1. CHONDROITIN SULFATE [Concomitant]
     Active Substance: SODIUM CHONDROITIN SULFATE
  2. XYREM [Suspect]
     Active Substance: SODIUM OXYBATE
     Indication: NARCOLEPSY
     Dosage: 2.25 G, BID
     Route: 048
     Dates: start: 201312, end: 201401
  3. MULTIVITAMINS [Concomitant]
     Active Substance: VITAMINS
  4. SAW PALMETTO [Concomitant]
     Active Substance: SAW PALMETTO
  5. AFRIN [Concomitant]
     Active Substance: OXYMETAZOLINE
  6. ALEVE [Concomitant]
     Active Substance: NAPROXEN SODIUM
  7. RITALIN [Concomitant]
     Active Substance: METHYLPHENIDATE HYDROCHLORIDE
  8. RED YEAST RICE [Concomitant]
     Active Substance: DIETARY SUPPLEMENT
  9. ANDROGEL [Concomitant]
     Active Substance: TESTOSTERONE
  10. PROAIR HFA [Concomitant]
     Active Substance: ALBUTEROL SULFATE
  11. ADVIL [Concomitant]
     Active Substance: IBUPROFEN
  12. XYREM [Suspect]
     Active Substance: SODIUM OXYBATE
     Dosage: 3 G, BID
     Route: 048
     Dates: start: 201401, end: 201503
  13. VITAMIN B12 [Concomitant]
     Active Substance: CYANOCOBALAMIN
  14. VITAMIN C [Concomitant]
     Active Substance: ASCORBIC ACID
  15. ECHINACEA + GOLDENSEAL [Concomitant]
  16. MUCINEX [Concomitant]
     Active Substance: GUAIFENESIN
  17. XYREM [Suspect]
     Active Substance: SODIUM OXYBATE
     Dosage: 3.75 G, BID
     Route: 048
     Dates: start: 201510
  18. COENZYME Q10 [Concomitant]
     Active Substance: UBIDECARENONE
  19. NASONEX [Concomitant]
     Active Substance: MOMETASONE FUROATE
  20. SINGULAIR [Concomitant]
     Active Substance: MONTELUKAST SODIUM

REACTIONS (4)
  - Urticaria [Unknown]
  - Poor quality sleep [Not Recovered/Not Resolved]
  - Throat irritation [Not Recovered/Not Resolved]
  - Sinus congestion [Recovered/Resolved]

NARRATIVE: CASE EVENT DATE: 20151215
